FAERS Safety Report 9841905 (Version 2)
Quarter: 2014Q1

REPORT INFORMATION
  Report Type: Spontaneous
  Country: JP (occurrence: JP)
  Receive Date: 20140124
  Receipt Date: 20140207
  Transmission Date: 20141002
  Serious: No
  Sender: FDA-Public Use
  Company Number: JP-PFIZER INC-2014019915

PATIENT
  Sex: 0

DRUGS (2)
  1. CHAMPIX [Suspect]
     Indication: SMOKING CESSATION THERAPY
     Dosage: 0.5 MG, 1X/DAY
     Route: 048
  2. CHAMPIX [Suspect]
     Dosage: 0.5 MG, 2X/DAY
     Route: 048

REACTIONS (1)
  - No adverse event [Unknown]
